FAERS Safety Report 8184935-2 (Version None)
Quarter: 2012Q1

REPORT INFORMATION
  Report Type: 
  Country: None (occurrence: None)
  Receive Date: 20120305
  Receipt Date: 20120228
  Transmission Date: 20120608
  Serious: Yes (Death)
  Sender: FDA-Public Use
  Company Number: US-GLAXOSMITHKLINE-A0968440A

PATIENT
  Age: 53 Year
  Sex: Female

DRUGS (4)
  1. HERCEPTIN [Concomitant]
  2. CENTRUM [Concomitant]
  3. TYKERB [Suspect]
     Indication: BREAST CANCER FEMALE
     Dosage: 250MG UNKNOWN
     Route: 048
     Dates: start: 20090210, end: 20120109
  4. VITAMIN D [Concomitant]

REACTIONS (1)
  - DEATH [None]
